FAERS Safety Report 4717982-0 (Version None)
Quarter: 2005Q3

REPORT INFORMATION
  Report Type: 
  Country: None (occurrence: None)
  Receive Date: 20050718
  Receipt Date: 20050214
  Transmission Date: 20060218
  Serious: No
  Sender: FDA-Public Use
  Company Number: 2005000359

PATIENT
  Sex: Female

DRUGS (2)
  1. TARCEVA [Suspect]
     Indication: NON-SMALL CELL LUNG CANCER
     Dosage: (QD), ORAL
     Route: 048
     Dates: start: 20050120
  2. ATORVASTATIN CALCIUM [Concomitant]

REACTIONS (3)
  - CONTUSION [None]
  - INJECTION SITE HAEMORRHAGE [None]
  - PYREXIA [None]
